FAERS Safety Report 9113283 (Version 1)
Quarter: 2013Q1

REPORT INFORMATION
  Report Type: Spontaneous
  Country: ES (occurrence: ES)
  Receive Date: 20130211
  Receipt Date: 20130211
  Transmission Date: 20140127
  Serious: Yes (Hospitalization)
  Sender: FDA-Public Use
  Company Number: ES-ELI_LILLY_AND_COMPANY-ES201301010336

PATIENT
  Sex: Female
  Weight: 80 kg

DRUGS (2)
  1. FORSTEO [Suspect]
     Indication: OSTEOPOROSIS
     Dosage: 20 UG, QD
     Route: 058
     Dates: start: 20110511, end: 201210
  2. ADIRO [Concomitant]
     Dosage: 1 DF, QD
     Route: 048

REACTIONS (1)
  - Cerebral infarction [Recovering/Resolving]
